FAERS Safety Report 7491306-0 (Version None)
Quarter: 2011Q2

REPORT INFORMATION
  Report Type: 
  Country: None (occurrence: None)
  Receive Date: 20110519
  Receipt Date: 20110509
  Transmission Date: 20111010
  Serious: Yes (Other)
  Sender: FDA-Public Use
  Company Number: B0717755A

PATIENT
  Sex: Male
  Weight: 9.4 kg

DRUGS (4)
  1. LAMICTAL [Suspect]
     Dosage: 2MG ALTERNATE DAYS
     Route: 048
     Dates: start: 20110225, end: 20110228
  2. SABRIL [Concomitant]
     Route: 065
  3. URBANYL [Concomitant]
     Route: 065
  4. VALPROATE SODIUM [Concomitant]
     Route: 065

REACTIONS (3)
  - OFF LABEL USE [None]
  - RASH [None]
  - INAPPROPRIATE SCHEDULE OF DRUG ADMINISTRATION [None]
